FAERS Safety Report 15114263 (Version 2)
Quarter: 2018Q4

REPORT INFORMATION
  Report Type: Report from Study
  Country: IT (occurrence: IT)
  Receive Date: 20180706
  Receipt Date: 20181008
  Transmission Date: 20190204
  Serious: Yes (Hospitalization)
  Sender: FDA-Public Use
  Company Number: IT-ELI_LILLY_AND_COMPANY-IT201806011124

PATIENT
  Age: 56 Year
  Sex: Female

DRUGS (10)
  1. EN [Suspect]
     Active Substance: DELORAZEPAM
     Indication: DEPRESSION
     Dosage: 10 DF, UNKNOWN
     Route: 048
     Dates: start: 20180607, end: 20180607
  2. INSULIN, LISPRO [Suspect]
     Active Substance: INSULIN LISPRO
     Indication: DIABETES MELLITUS
     Dosage: 300 IU, UNKNOWN
     Route: 058
     Dates: start: 20180607, end: 20180607
  3. CITALOPRAM [Concomitant]
     Active Substance: CITALOPRAM HYDROBROMIDE
     Indication: DEPRESSION
     Dosage: 10 GTT, UNKNOWN
     Route: 048
  4. NEBILOX [Concomitant]
     Active Substance: NEBIVOLOL HYDROCHLORIDE
     Indication: HYPERTENSION
     Dosage: 5 MG, UNKNOWN
     Route: 048
  5. CARDIOASPIRIN [Concomitant]
     Active Substance: ASPIRIN
     Indication: MYOCARDIAL INFARCTION
     Dosage: 100 MG, UNKNOWN
     Route: 048
  6. LANTUS [Concomitant]
     Active Substance: INSULIN GLARGINE
     Indication: DIABETES MELLITUS
     Dosage: 5 IU, UNKNOWN
     Route: 058
  7. FOZNOL [Concomitant]
     Indication: CHRONIC KIDNEY DISEASE
     Dosage: UNK UNK, UNKNOWN
     Route: 065
  8. ANSIOLIN [Suspect]
     Active Substance: DIAZEPAM
     Indication: DEPRESSION
     Dosage: 30 ML, UNKNOWN
     Route: 048
     Dates: start: 20180607, end: 20180607
  9. MONOKET [Concomitant]
     Active Substance: ISOSORBIDE MONONITRATE
     Indication: ACUTE MYOCARDIAL INFARCTION
     Dosage: 40 MG, UNKNOWN
     Route: 048
  10. PANTORC [Concomitant]
     Active Substance: PANTOPRAZOLE SODIUM
     Indication: PRODUCT USED FOR UNKNOWN INDICATION
     Dosage: 20 MG, UNKNOWN
     Route: 048

REACTIONS (2)
  - Drug abuse [Recovering/Resolving]
  - Intentional self-injury [Recovering/Resolving]

NARRATIVE: CASE EVENT DATE: 20180607
